FAERS Safety Report 8963191 (Version 2)
Quarter: 2012Q4

REPORT INFORMATION
  Report Type: 
  Country: JP (occurrence: JP)
  Receive Date: 20121213
  Receipt Date: 20121221
  Transmission Date: 20130627
  Serious: Yes (Hospitalization)
  Sender: FDA-Public Use
  Company Number: JP-009507513-1212JPN002952

PATIENT
  Age: 87 Year
  Sex: Male

DRUGS (15)
  1. NU-LOTAN TABLETS 50MG [Suspect]
     Indication: HYPERTENSION
     Dosage: 50 mg, qd
     Route: 048
     Dates: end: 20121121
  2. MUCOSTA [Concomitant]
     Dosage: daily dose unknown
  3. TAKEPRON [Concomitant]
     Dosage: daily dose unknown
  4. BENET [Concomitant]
     Dosage: daily dose unknown
  5. OPALMON [Concomitant]
     Dosage: daily dose unknown
  6. FUROSEMIDE [Concomitant]
     Dosage: daily dose unknown
  7. PREDONINE [Concomitant]
     Dosage: daily dose unknown
  8. MOHRUS [Concomitant]
     Dosage: daily dose unknown
  9. BAKTAR [Concomitant]
     Dosage: daily dose unknown
  10. RIMATIL [Concomitant]
     Dosage: daily dose unknown
  11. PREDNISOLONE [Concomitant]
     Dosage: daily dose unknown
  12. HIRUDOID [Concomitant]
     Dosage: daily dose unknown
  13. SUMILU [Concomitant]
     Dosage: daily dose unknown
  14. LIDOMEX [Concomitant]
     Dosage: daily dose unknown
  15. NIZORAL [Concomitant]
     Dosage: daily dose unknown

REACTIONS (3)
  - Renal impairment [Recovered/Resolved]
  - Blood potassium increased [Recovered/Resolved]
  - Hyperkalaemia [Recovered/Resolved]
